FAERS Safety Report 11804029 (Version 3)
Quarter: 2016Q1

REPORT INFORMATION
  Report Type: Report from Study
  Country: NL (occurrence: NL)
  Receive Date: 20151204
  Receipt Date: 20160122
  Transmission Date: 20160525
  Serious: Yes (Hospitalization)
  Sender: FDA-Public Use
  Company Number: NL-TEVA-615150USA

PATIENT
  Sex: Male

DRUGS (8)
  1. FOSTER [Concomitant]
     Active Substance: BECLOMETHASONE\FORMOTEROL
     Indication: PRODUCT USED FOR UNKNOWN INDICATION
     Dosage: UNK UNK, UNKNOWN FREQ. (2 DD 2)
     Route: 065
  2. ROSUVASTATINE [Concomitant]
     Active Substance: ROSUVASTATIN
     Indication: PRODUCT USED FOR UNKNOWN INDICATION
     Route: 065
  3. AZITHROMYCIN ANHYDROUS. [Concomitant]
     Active Substance: AZITHROMYCIN ANHYDROUS
     Indication: PRODUCT USED FOR UNKNOWN INDICATION
     Route: 065
  4. BENDAMUSTINE HYDROCHLORIDE [Suspect]
     Active Substance: BENDAMUSTINE HYDROCHLORIDE
     Indication: NON-HODGKIN^S LYMPHOMA
     Dosage: 170 MG, TOTAL DAILY DOSE
     Route: 042
     Dates: start: 20141230
  5. FLUNAZOL [Concomitant]
     Indication: PRODUCT USED FOR UNKNOWN INDICATION
     Dosage: 200 MG, UNKNOWN FREQ. (22-9 T/M 29--9)
     Route: 065
  6. LENALIDOMIDE [Suspect]
     Active Substance: LENALIDOMIDE
     Indication: NON-HODGKIN^S LYMPHOMA
     Dosage: 20 MG, TOTAL DAILY DOSE
     Route: 065
     Dates: start: 20150101
  7. CICLESONIDE [Concomitant]
     Active Substance: CICLESONIDE
     Indication: PRODUCT USED FOR UNKNOWN INDICATION
     Dosage: UNK UNK, UNKNOWN FREQ. (160 1 DD 1)
     Route: 065
  8. RITUXIMAB [Suspect]
     Active Substance: RITUXIMAB
     Indication: NON-HODGKIN^S LYMPHOMA
     Dosage: 750 MG, TOTAL DAILY DOSE
     Route: 065
     Dates: start: 20150901

REACTIONS (1)
  - Mouth ulceration [Recovered/Resolved]

NARRATIVE: CASE EVENT DATE: 20151007
